FAERS Safety Report 19601445 (Version 1)
Quarter: 2021Q3

REPORT INFORMATION
  Report Type: Report from Study
  Country: US (occurrence: US)
  Receive Date: 20210722
  Receipt Date: 20210722
  Transmission Date: 20211014
  Serious: Yes (Hospitalization)
  Sender: FDA-Public Use
  Company Number: US-SEATTLE GENETICS-2020SGN05786

PATIENT
  Sex: Female

DRUGS (7)
  1. TUCATINIB [Suspect]
     Active Substance: TUCATINIB
     Indication: BREAST CANCER FEMALE
     Dosage: UNK
  2. TUCATINIB [Suspect]
     Active Substance: TUCATINIB
     Dosage: UNK
  3. TUCATINIB [Suspect]
     Active Substance: TUCATINIB
     Dosage: 150 MG
     Route: 048
  4. CAPECITABINE. [Suspect]
     Active Substance: CAPECITABINE
     Indication: BREAST CANCER FEMALE
  5. TUCATINIB [Suspect]
     Active Substance: TUCATINIB
     Dosage: 50 MG, BID
     Route: 048
  6. TUCATINIB [Suspect]
     Active Substance: TUCATINIB
     Dosage: UNK
  7. TUCATINIB [Suspect]
     Active Substance: TUCATINIB
     Dosage: UNK

REACTIONS (8)
  - Skin fissures [Recovering/Resolving]
  - Palmar-plantar erythrodysaesthesia syndrome [Unknown]
  - Diarrhoea [Unknown]
  - Bone neoplasm [Unknown]
  - Dry skin [Recovering/Resolving]
  - Erythema [Recovering/Resolving]
  - Fatigue [Unknown]
  - Nausea [Unknown]
